FAERS Safety Report 8087538-3 (Version None)
Quarter: 2012Q1

REPORT INFORMATION
  Report Type: 
  Country: None (occurrence: None)
  Receive Date: 20120128
  Receipt Date: 20110408
  Transmission Date: 20120608
  Serious: No
  Sender: FDA-Public Use
  Company Number: US-ABBOTT-11P-163-0717811-00

PATIENT
  Age: 39 Year
  Sex: Female

DRUGS (10)
  1. BUPROPION HYDROCHLORIDE [Concomitant]
     Indication: DEPRESSION
     Route: 048
  2. ATENOLOL [Concomitant]
     Indication: ARRHYTHMIA
     Route: 048
  3. NORTRIPTYLINE HCL [Concomitant]
     Indication: MIGRAINE
     Route: 048
  4. CITALOPRAM [Concomitant]
     Indication: DEPRESSION
     Route: 048
  5. HUMIRA [Suspect]
     Indication: PSORIASIS
     Dates: start: 20100801
  6. HUMIRA [Suspect]
     Indication: PSORIATIC ARTHROPATHY
  7. VITAMIN B-12 [Concomitant]
     Indication: PRODUCT USED FOR UNKNOWN INDICATION
     Dosage: DAILY
     Route: 048
  8. AMBIEN [Concomitant]
     Indication: INSOMNIA
     Dosage: AS NEEDED
     Route: 048
  9. ASPIRIN [Concomitant]
     Indication: PRODUCT USED FOR UNKNOWN INDICATION
  10. PROBIOTIC [Concomitant]
     Indication: PRODUCT USED FOR UNKNOWN INDICATION
     Dosage: DAILY

REACTIONS (6)
  - PYREXIA [None]
  - INFLUENZA LIKE ILLNESS [None]
  - COUGH [None]
  - HEADACHE [None]
  - PSORIASIS [None]
  - NASOPHARYNGITIS [None]
